FAERS Safety Report 10962797 (Version 1)
Quarter: 2015Q1

REPORT INFORMATION
  Report Type: Spontaneous
  Country: AU (occurrence: AU)
  Receive Date: 20150327
  Receipt Date: 20150327
  Transmission Date: 20150721
  Serious: Yes (Other)
  Sender: FDA-Public Use
  Company Number: AU-ABBVIE-15P-008-1367847-00

PATIENT
  Age: 48 Year
  Sex: Female

DRUGS (2)
  1. TOPIRAMATE. [Suspect]
     Active Substance: TOPIRAMATE
     Indication: PRODUCT USED FOR UNKNOWN INDICATION
     Route: 065
     Dates: start: 2002, end: 2005
  2. VALPROATE SODIUM. [Suspect]
     Active Substance: VALPROATE SODIUM
     Indication: PRODUCT USED FOR UNKNOWN INDICATION
     Route: 065
     Dates: start: 2000

REACTIONS (8)
  - Agitation [Unknown]
  - Anxiety [Not Recovered/Not Resolved]
  - Mood altered [Recovering/Resolving]
  - Depression [Recovering/Resolving]
  - Seizure [Recovering/Resolving]
  - Memory impairment [Not Recovered/Not Resolved]
  - Disorientation [Unknown]
  - Stress [Recovering/Resolving]

NARRATIVE: CASE EVENT DATE: 2005
